FAERS Safety Report 5118038-8 (Version None)
Quarter: 2006Q3

REPORT INFORMATION
  Report Type: 
  Country: None (occurrence: None)
  Receive Date: 20060929
  Receipt Date: 20060926
  Transmission Date: 20061208
  Serious: Yes (Other)
  Sender: FDA-Public Use
  Company Number: GB-ROXANE LABORATORIES, INC-2006-UK-04047UK

PATIENT
  Age: 74 Year
  Sex: Male

DRUGS (12)
  1. ORAMORPH SR [Suspect]
  2. LYRICA [Suspect]
     Indication: NEURALGIA
     Route: 048
  3. ASPIRIN [Concomitant]
     Route: 048
  4. ALLOPURINOL [Concomitant]
     Indication: GOUT
     Route: 048
  5. ASPIRIN [Concomitant]
     Indication: ANTIPLATELET THERAPY
     Route: 048
  6. CARBOCISTEINE [Concomitant]
     Indication: INCREASED VISCOSITY OF BRONCHIAL SECRETION
     Route: 048
  7. FUROSEMIDE [Concomitant]
     Route: 065
  8. OXYGEN [Concomitant]
     Route: 065
  9. PREDNISOLONE [Concomitant]
     Indication: DYSPNOEA
     Route: 048
  10. QUININE SULFATE [Concomitant]
     Indication: MUSCLE SPASMS
     Route: 048
  11. ALBUTEROL SPIROS [Concomitant]
     Indication: DYSPNOEA
     Dosage: AS NECESSARY
     Route: 055
  12. SLOZEM [Concomitant]
     Indication: HYPERTENSION
     Route: 048

REACTIONS (8)
  - CONFUSIONAL STATE [None]
  - DEPRESSED LEVEL OF CONSCIOUSNESS [None]
  - DIZZINESS [None]
  - EMOTIONAL DISTRESS [None]
  - FATIGUE [None]
  - FEELING ABNORMAL [None]
  - HALLUCINATION [None]
  - MEMORY IMPAIRMENT [None]
